FAERS Safety Report 9600433 (Version 1)
Quarter: 2013Q4

REPORT INFORMATION
  Report Type: Spontaneous
  Country: US (occurrence: US)
  Receive Date: 20131004
  Receipt Date: 20131004
  Transmission Date: 20140711
  Serious: No
  Sender: FDA-Public Use
  Company Number: US-AMGEN-USASP2013034962

PATIENT
  Age: 14 Year
  Sex: Female
  Weight: 58.95 kg

DRUGS (4)
  1. ENBREL [Suspect]
     Indication: PRODUCT USED FOR UNKNOWN INDICATION
     Dosage: 50 MG, 2 TIMES/WK
     Route: 058
  2. HUMIRA [Concomitant]
     Dosage: UNK
  3. ADVIL                              /00044201/ [Concomitant]
     Dosage: 200 MG, UNK
  4. MIDOL                              /01685001/ [Concomitant]
     Dosage: 200 MG, UNK
     Route: 048

REACTIONS (5)
  - Pain [Unknown]
  - Contusion [Unknown]
  - Generalised erythema [Unknown]
  - Drug effect incomplete [Unknown]
  - Psoriasis [Unknown]
